FAERS Safety Report 5074246-6 (Version None)
Quarter: 2006Q3

REPORT INFORMATION
  Report Type: 
  Country: None (occurrence: None)
  Receive Date: 20060714
  Receipt Date: 20060501
  Transmission Date: 20061208
  Serious: No
  Sender: FDA-Public Use
  Company Number: 2006SP001895

PATIENT
  Age: 56 Year
  Sex: Female
  Weight: 70.3075 kg

DRUGS (5)
  1. LUNESTA [Suspect]
     Indication: INSOMNIA
     Dosage: 3 MG; ORAL; SEE IMAGE
     Route: 048
     Dates: start: 20050701, end: 20051201
  2. LUNESTA [Suspect]
     Indication: INSOMNIA
     Dosage: 3 MG; ORAL; SEE IMAGE
     Route: 048
     Dates: start: 20060201, end: 20060301
  3. LUNESTA [Suspect]
     Indication: INSOMNIA
     Dosage: 3 MG; ORAL; SEE IMAGE
     Route: 048
     Dates: start: 20060301
  4. ATIVAN [Concomitant]
  5. MULTIVITAMIN [Concomitant]

REACTIONS (4)
  - DIZZINESS [None]
  - FUNGAL SKIN INFECTION [None]
  - SKIN EXFOLIATION [None]
  - SOMNOLENCE [None]
